FAERS Safety Report 9197298 (Version 2)
Quarter: 2013Q2

REPORT INFORMATION
  Report Type: Spontaneous
  Country: US (occurrence: None)
  Receive Date: 20120709
  Receipt Date: 20121107
  Transmission Date: 20140414
  Serious: Yes (Other)
  Sender: FDA-Public Use
  Company Number: 2012HGS-003601

PATIENT
  Age: 46 Year
  Sex: Female

DRUGS (1)
  1. BENLYSTA [Suspect]
     Indication: SYSTEMIC LUPUS ERYTHEMATOSUS
     Dosage: INTRAVENOUS DRIP
     Route: 041
     Dates: start: 20120412

REACTIONS (9)
  - Systemic lupus erythematosus [None]
  - Muscular weakness [None]
  - Gait disturbance [None]
  - Muscle twitching [None]
  - Swelling face [None]
  - Pain in extremity [None]
  - Muscle spasms [None]
  - Asthenia [None]
  - Nervousness [None]
